FAERS Safety Report 7272246-9 (Version None)
Quarter: 2011Q1

REPORT INFORMATION
  Report Type: 
  Country: None (occurrence: None)
  Receive Date: 20110128
  Receipt Date: 20110113
  Transmission Date: 20110831
  Serious: Yes (Hospitalization)
  Sender: FDA-Public Use
  Company Number: 2011000204

PATIENT
  Age: 51 Year
  Sex: Female

DRUGS (7)
  1. OMEPRAZOLE [Concomitant]
  2. LASIX [Concomitant]
  3. LANSOPRAZOLE [Concomitant]
  4. DEXAMETHASONE SODIUM PHOSPHATE [Concomitant]
  5. TARCEVA [Suspect]
     Indication: NON-SMALL CELL LUNG CANCER
     Dosage: (150 MG,DAILY),ORAL
     Route: 048
     Dates: start: 20090202, end: 20090712
  6. ACICLIN [Concomitant]
  7. CLEXANE (HEPARNI-FRACTION, SODIUM SALT) [Concomitant]

REACTIONS (2)
  - COUGH [None]
  - HAEMOPTYSIS [None]
